FAERS Safety Report 7225140-3 (Version None)
Quarter: 2011Q1

REPORT INFORMATION
  Report Type: 
  Country: None (occurrence: None)
  Receive Date: 20110113
  Receipt Date: 20110110
  Transmission Date: 20110831
  Serious: Yes (Death, Hospitalization)
  Sender: FDA-Public Use
  Company Number: A0900231A

PATIENT
  Age: 48 Year
  Sex: Female
  Weight: 62.7 kg

DRUGS (4)
  1. CYCLOPHOSPHAMIDE [Suspect]
     Dosage: 600MGM2 CYCLIC
     Route: 042
     Dates: start: 20100813, end: 20101015
  2. PACLITAXEL [Suspect]
     Dosage: 80MGM2 CYCLIC
     Route: 042
     Dates: start: 20101105, end: 20101203
  3. DOXORUBICIN HCL [Suspect]
     Dosage: 60MGM2 CYCLIC
     Route: 042
     Dates: start: 20100813, end: 20101015
  4. PAZOPANIB [Suspect]
     Dosage: 800MG PER DAY
     Route: 048
     Dates: start: 20101105, end: 20101203

REACTIONS (10)
  - DEPRESSED LEVEL OF CONSCIOUSNESS [None]
  - METASTASES TO CENTRAL NERVOUS SYSTEM [None]
  - BRADYCARDIA [None]
  - FATIGUE [None]
  - HYPOTENSION [None]
  - DECREASED APPETITE [None]
  - HYPERTENSION [None]
  - CONVULSION [None]
  - PAIN [None]
  - DISEASE PROGRESSION [None]
